FAERS Safety Report 11405872 (Version 1)
Quarter: 2015Q3

REPORT INFORMATION
  Report Type: Spontaneous
  Country: US (occurrence: US)
  Receive Date: 20150821
  Receipt Date: 20150821
  Transmission Date: 20151125
  Serious: Yes (Other)
  Sender: FDA-Public Use
  Company Number: US-TEVA-586068USA

PATIENT
  Sex: Male

DRUGS (1)
  1. OLANZAPINE. [Suspect]
     Active Substance: OLANZAPINE
     Route: 065
     Dates: start: 2001

REACTIONS (5)
  - Confusional state [Unknown]
  - Dementia [Unknown]
  - Renal function test abnormal [Unknown]
  - Mental impairment [Unknown]
  - Hypoaesthesia [Unknown]
